FAERS Safety Report 24159340 (Version 1)
Quarter: 2024Q3

REPORT INFORMATION
  Report Type: Spontaneous
  Country: CA (occurrence: CA)
  Receive Date: 20240731
  Receipt Date: 20240731
  Transmission Date: 20241017
  Serious: Yes (Life-Threatening, Disabling)
  Sender: MYLAN
  Company Number: CA-MYLANLABS-2024M1071404

PATIENT
  Age: 50 Year
  Sex: Female
  Weight: 63 kg

DRUGS (8)
  1. PREGABALIN [Suspect]
     Active Substance: PREGABALIN
     Indication: Neuropathy peripheral
     Dosage: 50 MILLIGRAM, BID (2 EVERY 1 DAYS)
     Route: 048
  2. AMLODIPINE [Concomitant]
     Active Substance: AMLODIPINE BESYLATE
     Dosage: UNK
     Route: 065
  3. CLONAZEPAM [Concomitant]
     Active Substance: CLONAZEPAM
     Dosage: UNK
     Route: 065
  4. EFFEXOR [Concomitant]
     Active Substance: VENLAFAXINE HYDROCHLORIDE
     Dosage: UNK
     Route: 065
  5. IRBESARTAN [Concomitant]
     Active Substance: IRBESARTAN
     Dosage: UNK
     Route: 065
  6. LORATADINE [Concomitant]
     Active Substance: LORATADINE
     Dosage: UNK
     Route: 065
  7. TRAZODONE [Concomitant]
     Active Substance: TRAZODONE HYDROCHLORIDE
     Dosage: UNK
     Route: 065
  8. ZOLMITRIPTAN [Concomitant]
     Active Substance: ZOLMITRIPTAN
     Dosage: UNK
     Route: 065

REACTIONS (7)
  - Crying [Recovering/Resolving]
  - Migraine [Recovering/Resolving]
  - Suicidal ideation [Recovering/Resolving]
  - Hypoaesthesia [Recovering/Resolving]
  - Confusional state [Recovering/Resolving]
  - Depression [Recovering/Resolving]
  - Fatigue [Recovering/Resolving]
